FAERS Safety Report 7203593-4 (Version None)
Quarter: 2010Q4

REPORT INFORMATION
  Report Type: 
  Country: None (occurrence: None)
  Receive Date: 20101228
  Receipt Date: 20101228
  Transmission Date: 20110411
  Serious: Yes (Other)
  Sender: FDA-Public Use
  Company Number: None

PATIENT
  Age: 34 Year
  Sex: Female
  Weight: 95.2554 kg

DRUGS (8)
  1. AMPYRA [Suspect]
     Indication: MULTIPLE SCLEROSIS
     Dosage: 10MG BID PO
     Route: 048
     Dates: start: 20101029, end: 20101129
  2. COPAXONE [Concomitant]
  3. CELEXA [Concomitant]
  4. TOPAMAX [Concomitant]
  5. DETROL LA [Concomitant]
  6. MIRAPEX [Concomitant]
  7. CELEBREX [Concomitant]
  8. AMITRIPTYLINE [Concomitant]

REACTIONS (3)
  - BLOOD PRESSURE INCREASED [None]
  - DYSPNOEA [None]
  - ERYTHEMA [None]
